FAERS Safety Report 24906322 (Version 1)
Quarter: 2025Q1

REPORT INFORMATION
  Report Type: Spontaneous
  Country: US (occurrence: US)
  Receive Date: 20250130
  Receipt Date: 20250130
  Transmission Date: 20250409
  Serious: Yes (Other)
  Sender: AMGEN
  Company Number: US-AMGEN-USACT2025013174

PATIENT
  Age: 62 Year
  Sex: Female

DRUGS (6)
  1. EPOETIN ALFA [Suspect]
     Active Substance: ERYTHROPOIETIN
     Indication: Nephrogenic anaemia
     Route: 065
  2. CEFTRIAXONE [Suspect]
     Active Substance: CEFTRIAXONE
     Indication: Bacteraemia
     Dosage: 2 GRAM, QD
     Route: 065
  3. METRONIDAZOLE [Suspect]
     Active Substance: METRONIDAZOLE
     Indication: Bacteraemia
     Dosage: 500 MILLIGRAM, BID
     Route: 065
  4. INSULIN LISPRO [Concomitant]
     Active Substance: INSULIN LISPRO
     Indication: Type 2 diabetes mellitus
     Dosage: ^2-10 UNIT INJECTIONS BEFORE MEALS^ AND NIGHTLY, QD
     Route: 065
  5. SEVELAMER [Concomitant]
     Active Substance: SEVELAMER
  6. VITAMIN B COMPLEX [Concomitant]
     Active Substance: CYANOCOBALAMIN\DEXPANTHENOL\NIACINAMIDE\PYRIDOXINE HYDROCHLORIDE\RIBOFLAVIN 5^-PHOSPHATE SODIUM\THIA

REACTIONS (11)
  - Neuropathy peripheral [Recovered/Resolved]
  - Coronary artery disease [Unknown]
  - Mitral valve stenosis [Unknown]
  - Tricuspid valve incompetence [Unknown]
  - Cholecystitis [Unknown]
  - Bacteraemia [Unknown]
  - Peripheral arterial occlusive disease [Unknown]
  - Malaise [Unknown]
  - Tachycardia [Unknown]
  - Serratia test positive [Unknown]
  - Purpura [Unknown]
